FAERS Safety Report 7304562-6 (Version None)
Quarter: 2011Q1

REPORT INFORMATION
  Report Type: 
  Country: None (occurrence: None)
  Receive Date: 20110222
  Receipt Date: 20101129
  Transmission Date: 20110831
  Serious: Yes (Death, Hospitalization, Other)
  Sender: FDA-Public Use
  Company Number: PHHY2010ES80959

PATIENT
  Age: 75 Year
  Sex: Male

DRUGS (4)
  1. SINTROM [Interacting]
     Indication: ISCHAEMIC CARDIOMYOPATHY
     Dosage: UNK
     Route: 048
     Dates: end: 20080811
  2. PARACETAMOL [Concomitant]
     Indication: PAIN
     Dosage: 1 G, UNK
     Route: 048
  3. DICLOFENAC [Suspect]
     Dosage: UNK
     Dates: start: 20100712, end: 20100804
  4. MASDIL [Concomitant]
     Indication: HYPERTENSION
     Dosage: UNK
     Dates: end: 20080811

REACTIONS (14)
  - BLOOD CREATININE INCREASED [None]
  - HAEMATOCRIT DECREASED [None]
  - HYPOTENSION [None]
  - METASTASES TO LIVER [None]
  - WHITE BLOOD CELL COUNT INCREASED [None]
  - PYREXIA [None]
  - HAEMOGLOBIN DECREASED [None]
  - PLATELET COUNT DECREASED [None]
  - DRUG INTERACTION [None]
  - INTERNATIONAL NORMALISED RATIO INCREASED [None]
  - KLEBSIELLA SEPSIS [None]
  - INFECTION [None]
  - MELAENA [None]
  - UPPER GASTROINTESTINAL HAEMORRHAGE [None]
